FAERS Safety Report 19489065 (Version 7)
Quarter: 2021Q4

REPORT INFORMATION
  Report Type: Spontaneous
  Country: US (occurrence: US)
  Receive Date: 20210703
  Receipt Date: 20211113
  Transmission Date: 20220303
  Serious: Yes (Hospitalization, Other)
  Sender: FDA-Public Use
  Company Number: US-UNITED THERAPEUTICS-UNT-2021-011589

PATIENT
  Sex: Male
  Weight: 95.238 kg

DRUGS (17)
  1. TYVASO [Suspect]
     Active Substance: TREPROSTINIL
     Indication: Pulmonary arterial hypertension
     Dosage: UNK
     Dates: start: 20210604
  2. TYVASO [Suspect]
     Active Substance: TREPROSTINIL
     Dosage: 18-54 ?G, QID
     Dates: start: 2021
  3. TYVASO [Suspect]
     Active Substance: TREPROSTINIL
     Dosage: 36 ?G
     Dates: start: 202106, end: 202106
  4. TYVASO [Suspect]
     Active Substance: TREPROSTINIL
     Dosage: 24 ?G
     Dates: start: 202106, end: 202106
  5. TYVASO [Suspect]
     Active Substance: TREPROSTINIL
     Dosage: 18 ?G
     Dates: start: 202106
  6. TYVASO [Suspect]
     Active Substance: TREPROSTINIL
     Dosage: UNK
     Dates: start: 2021
  7. TYVASO [Suspect]
     Active Substance: TREPROSTINIL
     Dosage: UNK
     Dates: start: 2021
  8. TYVASO [Suspect]
     Active Substance: TREPROSTINIL
     Dosage: UNK
     Dates: start: 2021
  9. TYVASO [Suspect]
     Active Substance: TREPROSTINIL
     Dosage: UNK
     Dates: start: 2021
  10. TYVASO [Suspect]
     Active Substance: TREPROSTINIL
     Dosage: 90 ?G, QID
     Dates: start: 2021, end: 2021
  11. TYVASO [Suspect]
     Active Substance: TREPROSTINIL
     Dosage: 72 ?G, QID
     Dates: start: 2021
  12. UPTRAVI [Suspect]
     Active Substance: SELEXIPAG
     Indication: Pulmonary arterial hypertension
     Dosage: 1000 ?G, BID
     Route: 048
  13. UPTRAVI [Suspect]
     Active Substance: SELEXIPAG
     Dosage: 400 ?G, BID
     Route: 048
  14. UPTRAVI [Suspect]
     Active Substance: SELEXIPAG
     Dosage: 200 ?G, BID
     Route: 048
     Dates: end: 2021
  15. SILDENAFIL CITRATE [Suspect]
     Active Substance: SILDENAFIL CITRATE
     Indication: Product used for unknown indication
     Dosage: UNK
     Route: 065
  16. OPSUMIT [Concomitant]
     Active Substance: MACITENTAN
     Indication: Pulmonary arterial hypertension
     Dosage: 10 MG, QD
     Route: 048
  17. OPSUMIT [Concomitant]
     Active Substance: MACITENTAN
     Dosage: 10 MG, QD
     Route: 048

REACTIONS (18)
  - Loss of consciousness [Not Recovered/Not Resolved]
  - Malaise [Unknown]
  - Fall [Recovered/Resolved with Sequelae]
  - Asthenia [Unknown]
  - Dizziness [Not Recovered/Not Resolved]
  - Dyspnoea [Not Recovered/Not Resolved]
  - Secretion discharge [Unknown]
  - Presyncope [Unknown]
  - Tinnitus [Not Recovered/Not Resolved]
  - Dyspnoea exertional [Unknown]
  - Contusion [Unknown]
  - Limb injury [Unknown]
  - Arthralgia [Unknown]
  - Right ventricular enlargement [Unknown]
  - Right atrial enlargement [Unknown]
  - Productive cough [Unknown]
  - Device physical property issue [Unknown]
  - Off label use [Recovered/Resolved]

NARRATIVE: CASE EVENT DATE: 20210101
